FAERS Safety Report 8851990 (Version 2)
Quarter: 2012Q4

REPORT INFORMATION
  Report Type: 
  Country: US (occurrence: US)
  Receive Date: 20121022
  Receipt Date: 20121112
  Transmission Date: 20130627
  Serious: Yes (Death, Hospitalization)
  Sender: FDA-Public Use
  Company Number: US-ASTELLAS-2012US010330

PATIENT
  Age: 55 Year
  Sex: Male

DRUGS (2)
  1. PROGRAF [Suspect]
     Indication: LIVER TRANSPLANT
     Dosage: 3 mg, bid
     Route: 048
     Dates: start: 20120110
  2. PROGRAF [Suspect]
     Indication: RENAL TRANSPLANT

REACTIONS (2)
  - Respiratory disorder [Fatal]
  - Adverse event [Unknown]
